FAERS Safety Report 8131051 (Version 4)
Quarter: 2014Q1

REPORT INFORMATION
  Report Type: Spontaneous
  Country: US (occurrence: US)
  Receive Date: 20110912
  Receipt Date: 20140116
  Transmission Date: 20141002
  Serious: Yes (Other)
  Sender: FDA-Public Use
  Company Number: US-BAYER-2011-081753

PATIENT
  Age: 45 Year
  Sex: Female
  Weight: 77.1 kg

DRUGS (24)
  1. YAZ [Suspect]
     Indication: CONTRACEPTION
     Dosage: UNK
     Dates: start: 200705
  2. YAZ [Suspect]
     Indication: MENSTRUAL CYCLE MANAGEMENT
  3. YAZ [Suspect]
     Indication: MOOD ALTERED
  4. YASMIN [Suspect]
     Indication: CONTRACEPTION
     Dosage: UNK
     Dates: start: 200708, end: 200806
  5. YASMIN [Suspect]
     Indication: MENSTRUAL CYCLE MANAGEMENT
  6. YASMIN [Suspect]
     Indication: MOOD ALTERED
  7. OCELLA [Suspect]
     Indication: CONTRACEPTION
     Dosage: UNK
     Dates: start: 200807, end: 200809
  8. OCELLA [Suspect]
     Indication: MENSTRUAL CYCLE MANAGEMENT
  9. OCELLA [Suspect]
     Indication: MOOD ALTERED
  10. ACYCLOVIR [ACICLOVIR] [Concomitant]
     Indication: HERPES VIRUS INFECTION
     Dosage: UNK
     Route: 048
     Dates: start: 1989
  11. SINGULAIR [Concomitant]
     Dosage: 10 MG, UNK
     Route: 048
     Dates: start: 20080726, end: 20080927
  12. FLOVENT [Concomitant]
     Dosage: UNK
     Route: 055
     Dates: start: 20080824, end: 20081013
  13. ACIPHEX [Concomitant]
     Dosage: 20 MG, UNK
     Route: 048
     Dates: start: 20080703, end: 20081006
  14. AMBIEN [Concomitant]
     Indication: SLEEP DISORDER
     Dosage: 6.25 MG, UNK
     Route: 048
     Dates: start: 20080718, end: 20081012
  15. FLUOXETINE HCL [Concomitant]
     Dosage: 40 MG, UNK
     Route: 048
     Dates: start: 20080712, end: 20080913
  16. AVIANE [Concomitant]
  17. NORTRIPTYLINE [Concomitant]
     Indication: ANTIDEPRESSANT THERAPY
  18. CELEXA [Concomitant]
     Indication: ANXIETY
  19. CELEXA [Concomitant]
     Indication: DEPRESSION
  20. ASPIRIN [Concomitant]
  21. METHOCARBAMOL [Concomitant]
     Dosage: 750 MG, UNK
     Route: 048
     Dates: start: 20080731
  22. LORAZEPAM [Concomitant]
     Dosage: 1 MG, UNK
     Route: 048
     Dates: start: 20080815
  23. VALTREX [Concomitant]
     Dosage: 1 GM
     Route: 048
     Dates: start: 20080707, end: 20080905
  24. LAMOTRIGINE [Concomitant]
     Dosage: 200 MG, UNK
     Route: 048
     Dates: start: 20080815, end: 20081013

REACTIONS (12)
  - Cerebrovascular accident [None]
  - Cerebral thrombosis [None]
  - Cerebrovascular accident [None]
  - Gallbladder injury [None]
  - Cholecystitis chronic [None]
  - Cognitive disorder [None]
  - Learning disorder [None]
  - Amnesia [None]
  - Chest pain [None]
  - Injury [None]
  - Pain [None]
  - Mental disorder [None]
